FAERS Safety Report 6550897-4 (Version None)
Quarter: 2010Q1

REPORT INFORMATION
  Report Type: 
  Country: None (occurrence: None)
  Receive Date: 20100121
  Receipt Date: 20100111
  Transmission Date: 20100710
  Serious: Yes (Death)
  Sender: FDA-Public Use
  Company Number: 004556

PATIENT
  Age: 51 Year
  Sex: Female

DRUGS (14)
  1. ALPRAZOLAM [Suspect]
  2. BETA BLOCKING AGENTS [Suspect]
  3. BUPROPION [Suspect]
  4. FLUOXETINE [Suspect]
  5. ENALAPRIL MALEATE [Suspect]
  6. ZOLPIDEM [Suspect]
  7. CYCLOBENZAPRINE [Suspect]
  8. GLIBENCLAMIDE [Suspect]
  9. LISINOPRIL [Suspect]
  10. DICLOFENAC [Suspect]
  11. LOVASTATIN [Suspect]
  12. PHENOBARBITAL [Concomitant]
  13. ZOLPIDEM [Concomitant]
  14. LORAZEPAM [Concomitant]

REACTIONS (1)
  - COMPLETED SUICIDE [None]
